FAERS Safety Report 10202645 (Version 2)
Quarter: 2014Q2

REPORT INFORMATION
  Report Type: Spontaneous
  Country: US (occurrence: US)
  Receive Date: 20140528
  Receipt Date: 20140528
  Transmission Date: 20141212
  Serious: Yes (Other)
  Sender: FDA-Public Use
  Company Number: US-TEVA-483121USA

PATIENT
  Sex: Female

DRUGS (2)
  1. CLONAZEPAM [Suspect]
     Indication: ANXIETY
     Dosage: 1 MILLIGRAM DAILY;
  2. CLONAZEPAM [Suspect]
     Dosage: 1.5 MILLIGRAM DAILY;

REACTIONS (6)
  - Convulsion [Unknown]
  - Abnormal dreams [Recovering/Resolving]
  - Anxiety [Recovering/Resolving]
  - Drug ineffective [Recovering/Resolving]
  - Tachycardia [Unknown]
  - Inappropriate schedule of drug administration [Unknown]
